FAERS Safety Report 19961273 (Version 4)
Quarter: 2022Q2

REPORT INFORMATION
  Report Type: Spontaneous
  Country: US (occurrence: US)
  Receive Date: 20211017
  Receipt Date: 20220405
  Transmission Date: 20220721
  Serious: No
  Sender: FDA-Public Use
  Company Number: US-TEVA-2021-US-1964484

PATIENT
  Sex: Female

DRUGS (1)
  1. NEFAZODONE HYDROCHLORIDE [Suspect]
     Active Substance: NEFAZODONE HYDROCHLORIDE
     Route: 065

REACTIONS (7)
  - Withdrawal syndrome [Unknown]
  - Malaise [Unknown]
  - Drug ineffective [Unknown]
  - Depression [Unknown]
  - COVID-19 [Unknown]
  - General physical health deterioration [Unknown]
  - Product dose omission issue [Unknown]
